FAERS Safety Report 7395423-5 (Version None)
Quarter: 2011Q2

REPORT INFORMATION
  Report Type: 
  Country: None (occurrence: None)
  Receive Date: 20110405
  Receipt Date: 20101019
  Transmission Date: 20111010
  Serious: Yes (Other)
  Sender: FDA-Public Use
  Company Number: US-BAYER-201021623NA

PATIENT
  Sex: Female
  Weight: 130 kg

DRUGS (9)
  1. YAZ [Suspect]
     Dosage: UNK
  2. METFORMIN [Concomitant]
     Indication: BLOOD GLUCOSE ABNORMAL
     Dates: start: 20060101
  3. THYROID PREPARATIONS [Concomitant]
  4. LORTAB [Concomitant]
     Dosage: UNK
     Dates: start: 20080301
  5. YAZ [Suspect]
     Dosage: UNK UNK, QD
     Route: 048
     Dates: start: 20070601
  6. YASMIN [Suspect]
     Indication: PRODUCT USED FOR UNKNOWN INDICATION
     Route: 048
     Dates: start: 20070601, end: 20090601
  7. ZYRTEC [Concomitant]
     Indication: MULTIPLE ALLERGIES
     Dates: start: 20040101
  8. HYDROXYCHLOROQUINE SULFATE [Concomitant]
     Indication: MALARIA PROPHYLAXIS
     Dosage: UNK
     Dates: start: 20080301
  9. NAPROSYN [Concomitant]

REACTIONS (4)
  - GALLBLADDER DISORDER [None]
  - CHOLECYSTITIS CHRONIC [None]
  - CHOLELITHIASIS [None]
  - CHOLESTEROSIS [None]
